FAERS Safety Report 4740895-5 (Version None)
Quarter: 2005Q3

REPORT INFORMATION
  Report Type: 
  Country: None (occurrence: None)
  Receive Date: 20050810
  Receipt Date: 20050729
  Transmission Date: 20060218
  Serious: Yes (Hospitalization)
  Sender: FDA-Public Use
  Company Number: CO-SANOFI-SYNTHELABO-A01200505239

PATIENT
  Age: 84 Year

DRUGS (6)
  1. PLAVIX [Suspect]
     Indication: ARTERIAL THROMBOSIS
     Route: 048
     Dates: start: 20050601, end: 20050701
  2. CARBIDOPA + LEVODOPA [Suspect]
     Route: 048
  3. CLONAZEPAM [Suspect]
     Indication: RESTLESS LEGS SYNDROME
     Route: 048
  4. ACETAMINOPHEN W/ CODEINE [Suspect]
     Indication: RESTLESS LEGS SYNDROME
     Route: 048
  5. LOVASTATIN [Suspect]
     Indication: DYSLIPIDAEMIA
     Route: 048
  6. ASPIRIN [Concomitant]
     Indication: ARTERIAL THROMBOSIS
     Route: 048
     Dates: start: 20050601

REACTIONS (4)
  - ALANINE AMINOTRANSFERASE ABNORMAL [None]
  - ANAEMIA HAEMOLYTIC AUTOIMMUNE [None]
  - ASPARTATE AMINOTRANSFERASE ABNORMAL [None]
  - TRANSAMINASES ABNORMAL [None]
